FAERS Safety Report 13211618 (Version 2)
Quarter: 2017Q1

REPORT INFORMATION
  Report Type: Report from Study
  Country: None (occurrence: CA)
  Receive Date: 20170209
  Receipt Date: 20170213
  Transmission Date: 20170428
  Serious: Yes (Other)
  Sender: FDA-Public Use
  Company Number: CA-ABBVIE-17P-028-1868414-00

PATIENT
  Age: 67 Year
  Sex: Male
  Weight: 70.82 kg

DRUGS (1)
  1. LUPRON DEPOT [Suspect]
     Active Substance: LEUPROLIDE ACETATE
     Indication: PROSTATE CANCER
     Route: 030

REACTIONS (3)
  - Haemorrhage [Unknown]
  - Blood urine present [Unknown]
  - Ureteric obstruction [Not Recovered/Not Resolved]

NARRATIVE: CASE EVENT DATE: 201612
